FAERS Safety Report 6215861-3 (Version None)
Quarter: 2009Q2

REPORT INFORMATION
  Report Type: 
  Country: None (occurrence: None)
  Receive Date: 20090605
  Receipt Date: 20090604
  Transmission Date: 20091009
  Serious: Yes (Other)
  Sender: FDA-Public Use
  Company Number: ES-JNJFOC-20090601196

PATIENT
  Age: 80 Year
  Sex: Female

DRUGS (2)
  1. TAVANIC [Suspect]
     Indication: RESPIRATORY TRACT INFECTION
     Route: 042
  2. ALL OTHER THERAPEUTIC DRUGS [Concomitant]
     Indication: INTERSTITIAL LUNG DISEASE
     Route: 065

REACTIONS (4)
  - BRONCHOSPASM [None]
  - ERYTHEMA [None]
  - FACE OEDEMA [None]
  - PRURITUS [None]
